FAERS Safety Report 9538009 (Version 2)
Quarter: 2013Q4

REPORT INFORMATION
  Report Type: Spontaneous
  Country: GB (occurrence: GB)
  Receive Date: 20130919
  Receipt Date: 20131004
  Transmission Date: 20140711
  Serious: Yes (Death, Other)
  Sender: FDA-Public Use
  Company Number: GB-ROCHE-1278420

PATIENT
  Age: 53 Year
  Sex: Male
  Weight: 78 kg

DRUGS (8)
  1. PEGASYS [Suspect]
     Indication: HEPATITIS C
     Route: 058
     Dates: start: 20130821, end: 20130903
  2. COPEGUS [Suspect]
     Indication: HEPATITIS C
     Route: 048
     Dates: start: 20130821, end: 20130903
  3. TELAPREVIR [Suspect]
     Indication: HEPATITIS C
     Route: 048
     Dates: start: 20130821, end: 20130903
  4. PROPRANOLOL [Concomitant]
     Route: 048
     Dates: start: 2013
  5. METOCLOPRAMIDE [Concomitant]
     Indication: NAUSEA
     Route: 048
     Dates: start: 20130821
  6. OMEPRAZOLE [Concomitant]
     Route: 048
     Dates: start: 2010
  7. AMITRIPTYLINE [Concomitant]
     Indication: PAIN
     Route: 048
     Dates: start: 20110909
  8. CETIRIZINE [Concomitant]
     Indication: URTICARIA
     Route: 048
     Dates: start: 20130521

REACTIONS (10)
  - Hepatic failure [Fatal]
  - Pulmonary embolism [Fatal]
  - Sepsis [Fatal]
  - Cardiac arrest [Fatal]
  - Blood pressure decreased [Unknown]
  - Candida infection [Unknown]
  - Headache [Unknown]
  - Diarrhoea [Unknown]
  - Cough [Unknown]
  - Pyrexia [Unknown]
